FAERS Safety Report 22089725 (Version 1)
Quarter: 2023Q1

REPORT INFORMATION
  Report Type: Spontaneous
  Country: US (occurrence: None)
  Receive Date: 20230311
  Receipt Date: 20230311
  Transmission Date: 20230418
  Serious: Yes (Death)
  Sender: FDA-Public Use
  Company Number: None

PATIENT
  Age: 61 Year
  Sex: Male

DRUGS (3)
  1. BOSENTAN [Suspect]
     Active Substance: BOSENTAN
     Indication: Pulmonary hypertension
     Dosage: FREQUENCY : TWICE A DAY;?
     Route: 048
     Dates: start: 20190626, end: 20221210
  2. SILDENAFIL [Suspect]
     Active Substance: SILDENAFIL
  3. UPTRAVI [Suspect]
     Active Substance: SELEXIPAG

REACTIONS (1)
  - Hospice care [None]

NARRATIVE: CASE EVENT DATE: 20221223
